FAERS Safety Report 26168012 (Version 1)
Quarter: 2025Q4

REPORT INFORMATION
  Report Type: Spontaneous
  Country: US (occurrence: US)
  Receive Date: 20251217
  Receipt Date: 20251217
  Transmission Date: 20260118
  Serious: No
  Sender: BRAEBURN PHARMACEUTICALS
  Company Number: US-BRAEBURN PHARMACEUTICALS-US-BRA-25-000949

PATIENT
  Sex: Male

DRUGS (3)
  1. BRIXADI [Suspect]
     Active Substance: BUPRENORPHINE
     Indication: Product used for unknown indication
     Dosage: UNK, QW
     Route: 065
  2. BRIXADI [Suspect]
     Active Substance: BUPRENORPHINE
     Dosage: UNK UNK, MONTHLY
     Route: 065
  3. BRIXADI [Suspect]
     Active Substance: BUPRENORPHINE
     Dosage: 128 MILLIGRAM, MONTHLY (IN LOWER LEFT QUADRANT)
     Route: 058
     Dates: start: 20251027

REACTIONS (1)
  - Injection site reaction [Unknown]

NARRATIVE: CASE EVENT DATE: 20251001
